FAERS Safety Report 7424824-1 (Version None)
Quarter: 2011Q2

REPORT INFORMATION
  Report Type: 
  Country: None (occurrence: None)
  Receive Date: 20110419
  Receipt Date: 20110405
  Transmission Date: 20111010
  Serious: Yes (Death, Hospitalization)
  Sender: FDA-Public Use
  Company Number: US-CELGENEUS-163-21880-11030250

PATIENT
  Sex: Male
  Weight: 82.628 kg

DRUGS (4)
  1. SIMVASTATIN [Concomitant]
     Dosage: 40 MILLIGRAM
     Route: 065
  2. METOPROLOL SUCCINATE [Concomitant]
     Dosage: 25 MILLIGRAM
     Route: 065
  3. REVLIMID [Suspect]
     Indication: MULTIPLE MYELOMA
     Dosage: 7.5 MILLIGRAM
     Route: 048
     Dates: start: 20101021, end: 20110201
  4. LEVOTHYROXINE SODIUM [Concomitant]
     Dosage: 75 MICROGRAM
     Route: 065

REACTIONS (4)
  - PANCYTOPENIA [None]
  - GASTROINTESTINAL HAEMORRHAGE [None]
  - MULTIPLE MYELOMA [None]
  - RENAL FAILURE ACUTE [None]
